FAERS Safety Report 25611421 (Version 2)
Quarter: 2025Q3

REPORT INFORMATION
  Report Type: Report from Study
  Country: PE (occurrence: PE)
  Receive Date: 20250728
  Receipt Date: 20250820
  Transmission Date: 20251021
  Serious: Yes (Hospitalization, Other)
  Sender: BIOVITRUM
  Company Number: PE-AstraZeneca-CH-00915408A

PATIENT
  Age: 4 Month
  Sex: Male

DRUGS (1)
  1. PALIVIZUMAB [Suspect]
     Active Substance: PALIVIZUMAB
     Indication: Respiratory syncytial virus test
     Route: 030
     Dates: start: 20250612

REACTIONS (4)
  - Pneumonia viral [Not Recovered/Not Resolved]
  - Use of accessory respiratory muscles [Not Recovered/Not Resolved]
  - Agitation [Not Recovered/Not Resolved]
  - Product dose omission issue [Not Recovered/Not Resolved]

NARRATIVE: CASE EVENT DATE: 20250715
